FAERS Safety Report 8909309 (Version 1)
Quarter: 2012Q4

REPORT INFORMATION
  Report Type: Spontaneous
  Country: US (occurrence: None)
  Receive Date: 20121102
  Receipt Date: 20121102
  Transmission Date: 20130627
  Serious: Yes (Other)
  Sender: FDA-Public Use
  Company Number: 2012031115

PATIENT
  Sex: Female
  Weight: 83.01 kg

DRUGS (31)
  1. HIZENTRA [Suspect]
     Indication: IMMUNODEFICIENCY COMMON VARIABLE
     Dosage: (15 g 1x/week, 1 gm 5 ml vial; 75 ml in 4-6 sites over 1-2 hours Subcutaneous)
     Route: 058
     Dates: start: 20101116
  2. HIZENTRA [Suspect]
     Indication: IMMUNODEFICIENCY COMMON VARIABLE
     Dosage: (2 gm 10 ml vial Subcutaneous)
     Route: 058
     Dates: start: 20101116
  3. HIZENTRA [Suspect]
     Indication: IMMUNODEFICIENCY COMMON VARIABLE
     Dosage: (4 gm 20 ml vial Subcutaneous)
     Route: 058
     Dates: start: 20101116
  4. HIZENTRA [Suspect]
     Indication: IMMUNODEFICIENCY COMMON VARIABLE
     Dosage: (15 g 1x/week, 75 ml; 4-6 sites over 1-2 hours Subcutaneous)
     Route: 058
     Dates: start: 20121024, end: 20121024
  5. HIZENTRA [Suspect]
     Indication: IMMUNODEFICIENCY COMMON VARIABLE
     Dosage: (15 g 1x/week, 75 ml; 4-6 sites over 1-2 hours Subcutaneous)
     Route: 058
     Dates: start: 20121024, end: 20121024
  6. HIZENTRA [Suspect]
     Indication: IMMUNODEFICIENCY COMMON VARIABLE
     Dosage: (15 gm 1x/week, 75 ml; 4-6 sites over 1-2 hours Subcutaneous)
     Route: 058
     Dates: start: 20121024, end: 20121024
  7. ZOLOFT (SERTRALINE) [Concomitant]
  8. LIPITOR (ATORVASTATIN CALCIUM) [Concomitant]
  9. NITROSTAT (GLYCERYL TRINITRATE) [Concomitant]
  10. NEXIUM (ESOMEPRAZOLE MAGNESIUM) [Concomitant]
  11. FEROSUL (FERROUS SULFATE) [Concomitant]
  12. PERCOCET (OXYCOCET) [Concomitant]
  13. VIBRAMYCIN (DOXYCYCLINE) [Concomitant]
  14. REQUIP (ROPINIROLE HYDROCHLORIDE) [Concomitant]
  15. ASPIRIN (ACETYLSALICYLIC ACID) [Concomitant]
  16. AVELOX (MOXIFLOXACIN HYDROCHLORIDE) [Concomitant]
  17. PULMICORT (BUDESONIDE) [Concomitant]
  18. PROAIR (SALBUTAMOL SULFATE) [Concomitant]
  19. COLACE (DOCUSATE SODIUM) [Concomitant]
  20. IPRATROPIUM BROMIDE (IPRATROPIUM BROMIDE) [Concomitant]
  21. ALBUTEROL (SALBUTAMOL) [Concomitant]
  22. PORFOROMIST (FORMOTEROL) [Concomitant]
  23. ALDACTONE (SPIRONOLACTONE) [Concomitant]
  24. FENOFIBRATE (FENOFIBRATE) [Concomitant]
  25. SENOKOT (SENNA ALEXANDRINA) [Concomitant]
  26. TYLENOL (PARACETAMOL) [Concomitant]
  27. ZYRTEC (CETIRIZINE HYDROCHLORIDE) [Concomitant]
  28. LASIX (FUROSEMIDE) [Concomitant]
  29. CARDIZEM (DILTIAZEM) [Concomitant]
  30. THEOPHYLLINE (THEOPHYLLINE) [Concomitant]
  31. EPI-PEN (EPINEPHRINE HYDROCHLORIDE) [Concomitant]

REACTIONS (4)
  - Sinusitis [None]
  - Infusion site erythema [None]
  - Infusion site pruritus [None]
  - Infusion site swelling [None]
